FAERS Safety Report 4710753-0 (Version None)
Quarter: 2005Q3

REPORT INFORMATION
  Report Type: 
  Country: None (occurrence: None)
  Receive Date: 20050707
  Receipt Date: 20050616
  Transmission Date: 20060218
  Serious: Yes (Hospitalization, Other)
  Sender: FDA-Public Use
  Company Number: EWC050544183

PATIENT
  Age: 59 Year
  Sex: Male

DRUGS (11)
  1. ZYPREXA [Suspect]
     Indication: SCHIZOPHRENIA
     Dosage: 15 MG
     Dates: end: 20050515
  2. THROMBO ASS  (ACETYLSALICYLIC ACID) [Concomitant]
  3. PANTOPRAZOLE SODIUM [Concomitant]
  4. TRITACE (RAMIPRIL   / 00885601/) [Concomitant]
  5. CONCOR COR [Concomitant]
  6. ALDACTONE [Concomitant]
  7. LASIX (FUROSEMIDE   /00032601/) [Concomitant]
  8. NEUROLEPSIN [Concomitant]
  9. ALNA RETARD [Concomitant]
  10. ZOLDEM (ZOLPIDEM TARTRATE) [Concomitant]
  11. BACTRIM [Concomitant]

REACTIONS (4)
  - BLOOD TRIGLYCERIDES INCREASED [None]
  - BUNDLE BRANCH BLOCK LEFT [None]
  - HYPOTENSION [None]
  - MYOCARDIAL INFARCTION [None]
